FAERS Safety Report 7529790-6 (Version None)
Quarter: 2011Q2

REPORT INFORMATION
  Report Type: 
  Country: None (occurrence: None)
  Receive Date: 20110607
  Receipt Date: 20110527
  Transmission Date: 20111010
  Serious: Yes (Hospitalization)
  Sender: FDA-Public Use
  Company Number: US-ASTRAZENECA-2011SE33028

PATIENT
  Age: 85 Year
  Sex: Female

DRUGS (1)
  1. SEROQUEL [Suspect]
     Indication: DEMENTIA WITH LEWY BODIES
     Route: 048
     Dates: start: 20100101

REACTIONS (3)
  - MENTAL STATUS CHANGES [None]
  - IMPULSIVE BEHAVIOUR [None]
  - OFF LABEL USE [None]
